FAERS Safety Report 9678424 (Version 1)
Quarter: 2013Q4

REPORT INFORMATION
  Report Type: Spontaneous
  Country: SE (occurrence: SE)
  Receive Date: 20131108
  Receipt Date: 20131108
  Transmission Date: 20140711
  Serious: Yes (Hospitalization)
  Sender: FDA-Public Use
  Company Number: SE-ASTRAZENECA-2013SE77732

PATIENT
  Age: 73 Year
  Sex: Male

DRUGS (13)
  1. DUROFERON [Concomitant]
     Route: 048
  2. AZATIOPRIN MYLAN [Concomitant]
     Route: 048
  3. TROMBYL [Concomitant]
     Route: 048
  4. LOPERAMID MYLAN [Concomitant]
     Route: 048
  5. KALCIPOS-D [Concomitant]
     Route: 048
  6. CARBOCAIN ADRENALIN [Suspect]
     Indication: LOCAL ANAESTHESIA
     Route: 023
     Dates: start: 20130826, end: 20130831
  7. SIMVASTATIN [Concomitant]
     Route: 048
  8. ALFUZOSIN [Concomitant]
     Route: 048
  9. CITALOPRAM [Concomitant]
     Route: 048
  10. NITROLINGUAL SUBLINGUAL SPRAY [Concomitant]
     Dosage: 0.4 MG/DOSE, AS REQUIRED
     Route: 060
  11. SPASMOFEN SUPPOSITORY [Concomitant]
     Route: 054
  12. BEHEPAN [Concomitant]
     Route: 048
  13. IMUREL [Concomitant]
     Route: 048

REACTIONS (3)
  - Face oedema [Unknown]
  - Eyelid oedema [Unknown]
  - Angioedema [Unknown]
